FAERS Safety Report 9173460 (Version 1)
Quarter: 2013Q1

REPORT INFORMATION
  Report Type: Spontaneous
  Country: US (occurrence: US)
  Receive Date: 20130320
  Receipt Date: 20130320
  Transmission Date: 20140127
  Serious: No
  Sender: FDA-Public Use
  Company Number: US-MYLANLABS-2013S1002439

PATIENT
  Age: 65 Year
  Sex: Male

DRUGS (6)
  1. ATORVASTATIN CALCIUM TABLETS [Suspect]
     Indication: BLOOD CHOLESTEROL
     Route: 048
     Dates: start: 20130113, end: 20130128
  2. ATORVASTATIN CALCIUM TABLETS [Suspect]
     Indication: BLOOD CHOLESTEROL
     Route: 048
     Dates: start: 20130214, end: 20130214
  3. CLONAZEPAM [Concomitant]
  4. THERAGRAN-M /07499601/ [Concomitant]
  5. FISH OIL [Concomitant]
  6. VITAMIN D [Concomitant]

REACTIONS (6)
  - Eczema [Not Recovered/Not Resolved]
  - Infection [Recovered/Resolved]
  - Pruritus generalised [Not Recovered/Not Resolved]
  - Urticaria [Not Recovered/Not Resolved]
  - Nervousness [Not Recovered/Not Resolved]
  - Feeling abnormal [Not Recovered/Not Resolved]
